FAERS Safety Report 23143464 (Version 1)
Quarter: 2023Q4

REPORT INFORMATION
  Report Type: Spontaneous
  Country: US (occurrence: US)
  Receive Date: 20231103
  Receipt Date: 20231103
  Transmission Date: 20240110
  Serious: No
  Sender: FDA-Public Use
  Company Number: US-ADVANZ PHARMA-202303001744

PATIENT

DRUGS (2)
  1. LANOXIN [Suspect]
     Active Substance: DIGOXIN
     Indication: Cardiac failure
     Dosage: TAKEN LANOXIN FOR OVER 10 YRS
  2. DIGOXIN [Suspect]
     Active Substance: DIGOXIN
     Indication: Cardiac failure
     Dosage: STARTED USING GENERIC FOR ABOUT A MONTH AND A HALF RECENTLY

REACTIONS (4)
  - Condition aggravated [Unknown]
  - Product substitution issue [Unknown]
  - Product availability issue [Unknown]
  - Drug ineffective [Unknown]
